FAERS Safety Report 21823943 (Version 1)
Quarter: 2023Q1

REPORT INFORMATION
  Report Type: Spontaneous
  Country: IT (occurrence: IT)
  Receive Date: 20230105
  Receipt Date: 20230105
  Transmission Date: 20230417
  Serious: Yes (Hospitalization, Other)
  Sender: FDA-Public Use
  Company Number: IT-002147023-NVSC2023IT001357

PATIENT
  Age: 5 Year
  Sex: Male

DRUGS (1)
  1. CEFTRIAXONE [Suspect]
     Active Substance: CEFTRIAXONE
     Indication: Lymphadenitis
     Dosage: 75 MG/KG, QD
     Route: 042

REACTIONS (2)
  - Hepatitis cholestatic [Recovered/Resolved]
  - Product use in unapproved indication [Unknown]
